FAERS Safety Report 24576971 (Version 2)
Quarter: 2024Q4

REPORT INFORMATION
  Report Type: Spontaneous
  Country: CH (occurrence: CH)
  Receive Date: 20241104
  Receipt Date: 20241113
  Transmission Date: 20250114
  Serious: Yes (Other)
  Sender: NOVARTIS
  Company Number: CH-002147023-NVSC2024CH180502

PATIENT
  Sex: Female

DRUGS (8)
  1. LUTATHERA [Suspect]
     Active Substance: LUTETIUM OXODOTREOTIDE LU-177
     Indication: Pancreatic neuroendocrine tumour
     Dosage: 7400 MBQ, Q8W (4 CYCLES)
     Route: 042
     Dates: start: 20140115, end: 20140715
  2. LUTATHERA [Suspect]
     Active Substance: LUTETIUM OXODOTREOTIDE LU-177
     Indication: Metastases to liver
     Dosage: 7400 MBQ, Q8W (4 CYCLES)
     Route: 042
     Dates: start: 20190827, end: 20200212
  3. LUTATHERA [Suspect]
     Active Substance: LUTETIUM OXODOTREOTIDE LU-177
     Indication: Metastases to bone
     Dosage: 7465 MBQ, ONCE/SINGLE (9TH CYCLE OF LUTATHERA)
     Route: 042
     Dates: start: 20240715
  4. LUTATHERA [Suspect]
     Active Substance: LUTETIUM OXODOTREOTIDE LU-177
     Indication: Metastases to lymph nodes
     Dosage: 7465 MBQ, ONCE/SINGLE (10TH CYCLE OF LUTATHERA)
     Route: 042
     Dates: start: 20240909
  5. LANREOTIDE [Concomitant]
     Active Substance: LANREOTIDE
     Indication: Product used for unknown indication
     Dosage: 120 MG, Q4W
     Route: 058
     Dates: start: 202004
  6. CREON [Concomitant]
     Active Substance: PANCRELIPASE AMYLASE\PANCRELIPASE LIPASE\PANCRELIPASE PROTEASE
     Indication: Product used for unknown indication
     Dosage: 25000 U, PRN
     Route: 048
  7. MEFENAMIC ACID [Concomitant]
     Active Substance: MEFENAMIC ACID
     Indication: Product used for unknown indication
     Dosage: 500 MG, PRN
     Route: 048
  8. BUTYLSCOPOLAMINE BROMIDE [Concomitant]
     Active Substance: BUTYLSCOPOLAMINE BROMIDE
     Indication: Product used for unknown indication
     Dosage: 10 MG, PRN
     Route: 048

REACTIONS (3)
  - Pancreatic neuroendocrine tumour [Not Recovered/Not Resolved]
  - Malignant neoplasm progression [Not Recovered/Not Resolved]
  - Off label use [Unknown]

NARRATIVE: CASE EVENT DATE: 20240531
